FAERS Safety Report 23601157 (Version 1)
Quarter: 2024Q1

REPORT INFORMATION
  Report Type: Spontaneous
  Country: CN (occurrence: CN)
  Receive Date: 20240306
  Receipt Date: 20240306
  Transmission Date: 20240409
  Serious: Yes (Other)
  Sender: FDA-Public Use
  Company Number: None

PATIENT
  Age: 44 Year
  Sex: Male
  Weight: 80 kg

DRUGS (15)
  1. IFOSFAMIDE [Suspect]
     Active Substance: IFOSFAMIDE
     Indication: Neoplasm malignant
     Dosage: 4 G, QD, D1-D4
     Route: 041
     Dates: start: 20240208, end: 20240211
  2. IFOSFAMIDE [Suspect]
     Active Substance: IFOSFAMIDE
     Indication: Soft tissue neoplasm
  3. IFOSFAMIDE [Suspect]
     Active Substance: IFOSFAMIDE
     Indication: Neoplasm recurrence
  4. MESNA [Suspect]
     Active Substance: MESNA
     Indication: Neoplasm malignant
     Dosage: 4000 MG, QD, D1-D4, DOSAGE FORM- INJECTION
     Route: 041
     Dates: start: 20240208, end: 20240211
  5. MESNA [Suspect]
     Active Substance: MESNA
     Indication: Soft tissue neoplasm
  6. MESNA [Suspect]
     Active Substance: MESNA
     Indication: Neoplasm recurrence
  7. EPIRUBICIN HYDROCHLORIDE [Suspect]
     Active Substance: EPIRUBICIN HYDROCHLORIDE
     Indication: Neoplasm malignant
     Dosage: 85 MG, QD, D1-D2
     Route: 041
     Dates: start: 20240208, end: 20240209
  8. EPIRUBICIN HYDROCHLORIDE [Suspect]
     Active Substance: EPIRUBICIN HYDROCHLORIDE
     Indication: Soft tissue neoplasm
  9. EPIRUBICIN HYDROCHLORIDE [Suspect]
     Active Substance: EPIRUBICIN HYDROCHLORIDE
     Indication: Neoplasm recurrence
  10. DEXRAZOXANE [Suspect]
     Active Substance: DEXRAZOXANE
     Indication: Neoplasm malignant
     Dosage: 1000 MG, QD, D1-D2
     Route: 041
     Dates: start: 20240208, end: 20240209
  11. DEXRAZOXANE [Suspect]
     Active Substance: DEXRAZOXANE
     Indication: Soft tissue neoplasm
  12. DEXRAZOXANE [Suspect]
     Active Substance: DEXRAZOXANE
     Indication: Neoplasm recurrence
  13. GRANISETRON [Suspect]
     Active Substance: GRANISETRON
     Indication: Neoplasm malignant
     Dosage: 3 MG, QD
     Route: 041
     Dates: start: 20240208
  14. GRANISETRON [Suspect]
     Active Substance: GRANISETRON
     Indication: Soft tissue neoplasm
  15. GRANISETRON [Suspect]
     Active Substance: GRANISETRON
     Indication: Neoplasm recurrence

REACTIONS (4)
  - Cystitis haemorrhagic [Recovering/Resolving]
  - Pollakiuria [Recovering/Resolving]
  - Dysuria [Recovering/Resolving]
  - Haematuria [Unknown]

NARRATIVE: CASE EVENT DATE: 20240209
